FAERS Safety Report 4833058-6 (Version None)
Quarter: 2005Q4

REPORT INFORMATION
  Report Type: 
  Country: None (occurrence: None)
  Receive Date: 20051121
  Receipt Date: 20051110
  Transmission Date: 20060501
  Serious: Yes (Hospitalization)
  Sender: FDA-Public Use
  Company Number: US-ROCHE-424357

PATIENT
  Age: 54 Year
  Sex: Female

DRUGS (2)
  1. CELLCEPT [Suspect]
     Indication: RENAL TRANSPLANT
     Route: 048
     Dates: start: 19990615, end: 20051015
  2. CELLCEPT [Suspect]
     Route: 042
     Dates: start: 20051015

REACTIONS (1)
  - CEREBRAL HAEMORRHAGE [None]
